FAERS Safety Report 9314627 (Version 4)
Quarter: 2013Q3

REPORT INFORMATION
  Report Type: Spontaneous
  Country: US (occurrence: US)
  Receive Date: 20130529
  Receipt Date: 20130715
  Transmission Date: 20140515
  Serious: Yes (Death)
  Sender: FDA-Public Use
  Company Number: US-PFIZER INC-2013159536

PATIENT
  Age: 79 Year
  Sex: Male

DRUGS (6)
  1. VFEND [Suspect]
     Indication: ASPERGILLUS INFECTION
     Dosage: 200 MG, 2X/DAY
     Route: 048
     Dates: start: 20130423, end: 20130518
  2. VFEND [Suspect]
     Indication: OSTEOMYELITIS
  3. LASIX [Concomitant]
     Indication: CARDIAC FAILURE CONGESTIVE
     Dosage: UNK
  4. ZYVOX [Concomitant]
     Dosage: UNK
     Dates: start: 20130510, end: 20130518
  5. CORDARONE [Concomitant]
  6. BUMEX [Concomitant]
     Dosage: UNK

REACTIONS (1)
  - Respiratory failure [Fatal]
